FAERS Safety Report 20657808 (Version 1)
Quarter: 2022Q1

REPORT INFORMATION
  Report Type: Spontaneous
  Country: US (occurrence: US)
  Receive Date: 20220331
  Receipt Date: 20220331
  Transmission Date: 20220423
  Serious: Yes (Other)
  Sender: FDA-Public Use
  Company Number: US-SA-SAC20220330000975

PATIENT
  Age: 34 Year
  Sex: Female

DRUGS (1)
  1. ZANTAC [Suspect]
     Active Substance: RANITIDINE HYDROCHLORIDE
     Indication: Abdominal discomfort
     Dosage: FREQUENCY: OCCASIONAL
     Route: 065
     Dates: start: 200602, end: 201201

REACTIONS (2)
  - Colorectal cancer [Unknown]
  - Oesophageal carcinoma [Unknown]

NARRATIVE: CASE EVENT DATE: 20190801
